FAERS Safety Report 25841300 (Version 1)
Quarter: 2025Q3

REPORT INFORMATION
  Report Type: Spontaneous
  Country: EU (occurrence: EU)
  Receive Date: 20250924
  Receipt Date: 20250924
  Transmission Date: 20251021
  Serious: Yes (Hospitalization)
  Sender: PFIZER
  Company Number: EU-PFIZER INC-202500187964

PATIENT
  Age: 63 Year
  Sex: Male

DRUGS (1)
  1. LORLATINIB [Suspect]
     Active Substance: LORLATINIB
     Dates: start: 20241204

REACTIONS (1)
  - Pericarditis [Unknown]

NARRATIVE: CASE EVENT DATE: 20250813
